FAERS Safety Report 6835666-X (Version None)
Quarter: 2010Q3

REPORT INFORMATION
  Report Type: 
  Country: None (occurrence: None)
  Receive Date: 20100712
  Receipt Date: 20100712
  Transmission Date: 20110219
  Serious: Yes (Life-Threatening)
  Sender: FDA-Public Use
  Company Number: None

PATIENT
  Age: 52 Year
  Sex: Female
  Weight: 48.9885 kg

DRUGS (1)
  1. LEXIPRO 1MG/ML [Suspect]
     Indication: DEPRESSION
     Dosage: 2.5MG QD PO
     Route: 048
     Dates: start: 20100601, end: 20100625

REACTIONS (1)
  - SUICIDAL IDEATION [None]
